FAERS Safety Report 18042880 (Version 1)
Quarter: 2020Q3

REPORT INFORMATION
  Report Type: Spontaneous
  Country: DE (occurrence: DE)
  Receive Date: 20200720
  Receipt Date: 20200720
  Transmission Date: 20201103
  Serious: Yes (Hospitalization, Other)
  Sender: FDA-Public Use
  Company Number: DE-ROCHE-2634664

PATIENT
  Age: 85 Year
  Sex: Female
  Weight: 53 kg

DRUGS (5)
  1. CELLCEPT [Suspect]
     Active Substance: MYCOPHENOLATE MOFETIL\MYCOPHENOLATE MOFETIL HYDROCHLORIDE
     Indication: MYASTHENIA GRAVIS
     Route: 048
     Dates: start: 201607
  2. MESTINON [Concomitant]
     Active Substance: PYRIDOSTIGMINE BROMIDE
     Indication: MYASTHENIA GRAVIS
     Route: 048
     Dates: start: 201707
  3. MESTINON [Suspect]
     Active Substance: PYRIDOSTIGMINE BROMIDE
     Indication: MYASTHENIA GRAVIS
     Dosage: 90 MG IN THE MORNING, 180 MG IN THE EVENING
     Route: 048
     Dates: start: 201707
  4. PREDNISOLONE. [Concomitant]
     Active Substance: PREDNISOLONE
     Indication: MYASTHENIA GRAVIS
     Route: 048
     Dates: start: 201608
  5. ELIQUIS [Concomitant]
     Active Substance: APIXABAN
     Indication: MYASTHENIA GRAVIS
     Route: 048
     Dates: start: 2018

REACTIONS (8)
  - Diarrhoea [Not Recovered/Not Resolved]
  - Off label use [Unknown]
  - Weight decreased [Not Recovered/Not Resolved]
  - Malabsorption [Not Recovered/Not Resolved]
  - Blood creatinine increased [Unknown]
  - Intentional product use issue [Unknown]
  - Renal failure [Unknown]
  - Diverticulum [Unknown]

NARRATIVE: CASE EVENT DATE: 2017
